FAERS Safety Report 8927325 (Version 1)
Quarter: 2012Q4

REPORT INFORMATION
  Report Type: Report from Study
  Country: US (occurrence: US)
  Receive Date: 20121127
  Receipt Date: 20121127
  Transmission Date: 20130627
  Serious: Yes (Hospitalization)
  Sender: FDA-Public Use
  Company Number: US-BAXTER-2012BAX024294

PATIENT
  Age: 79 Year
  Sex: Male

DRUGS (3)
  1. CYTOXAN? (CYCLOPHOSPHAMIDE FOR INJECTION, USP) [Suspect]
     Indication: CHRONIC LYMPHOCYTIC LEUKEMIA
     Route: 065
  2. FLUDARA [Suspect]
     Indication: CHRONIC LYMPHOCYTIC LEUKEMIA
     Route: 065
  3. RITUXAN [Suspect]
     Indication: CHRONIC LYMPHOCYTIC LEUKEMIA
     Route: 065

REACTIONS (2)
  - Urosepsis [Unknown]
  - Pneumonia klebsiella [Unknown]
